FAERS Safety Report 4535814-0 (Version None)
Quarter: 2004Q4

REPORT INFORMATION
  Report Type: 
  Country: None (occurrence: None)
  Receive Date: 20041223
  Receipt Date: 20040331
  Transmission Date: 20050328
  Serious: No
  Sender: FDA-Public Use
  Company Number: US-GLAXOSMITHKLINE-A0505420A

PATIENT
  Age: 43 Year
  Sex: Female

DRUGS (3)
  1. FLONASE [Suspect]
     Indication: ILL-DEFINED DISORDER
     Dosage: 4SPR TWICE PER DAY
     Route: 045
  2. BIRTH CONTROL PILL [Concomitant]
  3. BACTROBAN [Concomitant]

REACTIONS (1)
  - RHINITIS [None]
